FAERS Safety Report 24595728 (Version 1)
Quarter: 2024Q4

REPORT INFORMATION
  Report Type: Spontaneous
  Country: CA (occurrence: CA)
  Receive Date: 20241109
  Receipt Date: 20241109
  Transmission Date: 20250115
  Serious: Yes (Other)
  Sender: CELLTRION
  Company Number: CA-CELLTRION INC.-2022CA022609

PATIENT

DRUGS (9)
  1. TRUXIMA [Suspect]
     Active Substance: RITUXIMAB-ABBS
     Indication: Microscopic polyangiitis
     Dosage: 500 MILLIGRAM Q6 MONTHS
     Route: 042
     Dates: start: 20220623
  2. TRUXIMA [Suspect]
     Active Substance: RITUXIMAB-ABBS
     Dosage: 500 MG Q6 MONTHS
     Route: 042
     Dates: start: 20220623
  3. TRUXIMA [Suspect]
     Active Substance: RITUXIMAB-ABBS
     Dosage: 500 MG, INFUSION#4
     Route: 042
     Dates: start: 20220623
  4. TRUXIMA [Suspect]
     Active Substance: RITUXIMAB-ABBS
     Dosage: 500 MG, INFUSION#5 (500 MG (50 ML) IN NS FOR VT 250 ML)
     Route: 042
     Dates: start: 20220623
  5. TRUXIMA [Suspect]
     Active Substance: RITUXIMAB-ABBS
     Dosage: 500 MG, INFUSION#6
     Route: 042
     Dates: start: 20220623
  6. ACETAMINOPHEN [Concomitant]
     Active Substance: ACETAMINOPHEN
     Indication: Premedication
     Dosage: 650 MILLIGRAM
     Route: 048
  7. BENADRYL [Concomitant]
     Active Substance: DIPHENHYDRAMINE HYDROCHLORIDE
     Indication: Premedication
     Dosage: 50 MILLIGRAM
     Route: 048
  8. SOLU-MEDROL [Concomitant]
     Active Substance: METHYLPREDNISOLONE SODIUM SUCCINATE
     Indication: Premedication
     Dosage: 100 MILLIGRAM, IN 50 NS START IN 15 MIN
     Route: 042
  9. PROLIA [Concomitant]
     Active Substance: DENOSUMAB

REACTIONS (20)
  - Cerebrovascular accident [Unknown]
  - Sinusitis [Unknown]
  - Pneumonia [Not Recovered/Not Resolved]
  - Toothache [Recovered/Resolved]
  - Bone pain [Unknown]
  - Alopecia [Unknown]
  - Therapeutic product effect decreased [Unknown]
  - Osteoporosis [Unknown]
  - Infection [Recovered/Resolved]
  - Injection site erythema [Unknown]
  - Fatigue [Unknown]
  - Blood pressure increased [Unknown]
  - Urinary tract infection [Recovered/Resolved]
  - Arthralgia [Not Recovered/Not Resolved]
  - Back pain [Not Recovered/Not Resolved]
  - Sinusitis [Unknown]
  - Fatigue [Unknown]
  - Therapeutic response unexpected [Unknown]
  - Medication error [Unknown]
  - Condition aggravated [Unknown]

NARRATIVE: CASE EVENT DATE: 20230117
